FAERS Safety Report 6519269-2 (Version None)
Quarter: 2009Q4

REPORT INFORMATION
  Report Type: 
  Country: None (occurrence: None)
  Receive Date: 20091228
  Receipt Date: 20091218
  Transmission Date: 20100525
  Serious: Yes (Other)
  Sender: FDA-Public Use
  Company Number: PHHY2009BR45463

PATIENT
  Age: 70 Year
  Sex: Male

DRUGS (2)
  1. FORASEQ [Suspect]
     Dosage: 4 CAPSULES (12/400 MG)
  2. FORASEQ [Suspect]
     Dosage: 2 CAPSULES (12/400 MG)

REACTIONS (3)
  - DEVICE MALFUNCTION [None]
  - DYSPNOEA [None]
  - VISUAL IMPAIRMENT [None]
